FAERS Safety Report 5447578-7 (Version None)
Quarter: 2007Q3

REPORT INFORMATION
  Report Type: 
  Country: None (occurrence: None)
  Receive Date: 20070905
  Receipt Date: 20070905
  Transmission Date: 20080115
  Serious: No
  Sender: FDA-Public Use
  Company Number: None

PATIENT
  Age: 40 Year
  Sex: Male

DRUGS (15)
  1. MORPHINE IMMEDIATE RELEASE -IR- UNKNOWN UNKNOWN [Suspect]
     Dosage: 15 MG TWICE DAILY PO
     Route: 048
     Dates: start: 20070720, end: 20070729
  2. HYDROMORPHONE HCL [Suspect]
     Indication: ANALGESIA
     Dates: start: 20070720, end: 20070729
  3. AMLODIPINE [Concomitant]
  4. CEFTRIAXONE [Concomitant]
  5. DIPHENHYDRAMINE HCL [Concomitant]
  6. DOCUSATE SODIUM [Concomitant]
  7. ESOMEPRAZOLE MAGNESIUM [Concomitant]
  8. FERROUS SULFATE TAB [Concomitant]
  9. HEPARIN SODIUM [Concomitant]
  10. LABETALOL HCL [Concomitant]
  11. ROSUVASTATIN [Concomitant]
  12. PROMETHAZINE [Concomitant]
  13. LINEZOLID [Concomitant]
  14. SEVE;AMER [Concomitant]
  15. NITRO-VITE [Concomitant]

REACTIONS (12)
  - BLOOD ALBUMIN INCREASED [None]
  - BLOOD ALKALINE PHOSPHATASE INCREASED [None]
  - BLOOD CHLORIDE DECREASED [None]
  - BLOOD CREATININE INCREASED [None]
  - BLOOD UREA INCREASED [None]
  - HAEMATOCRIT DECREASED [None]
  - HAEMOGLOBIN DECREASED [None]
  - HALLUCINATION, VISUAL [None]
  - INADEQUATE ANALGESIA [None]
  - PLATELET COUNT INCREASED [None]
  - RED BLOOD CELL COUNT DECREASED [None]
  - WHITE BLOOD CELL COUNT INCREASED [None]
